FAERS Safety Report 7747442-4 (Version None)
Quarter: 2011Q3

REPORT INFORMATION
  Report Type: 
  Country: None (occurrence: None)
  Receive Date: 20110909
  Receipt Date: 20110830
  Transmission Date: 20111222
  Serious: Yes (Other)
  Sender: FDA-Public Use
  Company Number: 2010EU001160

PATIENT
  Sex: Male

DRUGS (3)
  1. TACROLIMUS [Suspect]
     Indication: DERMATITIS ATOPIC
     Dosage: 0.03%, PRN,
     Dates: start: 20080215
  2. DESLORATADINE [Concomitant]
  3. FLUTICASONE PROPIONATE [Concomitant]

REACTIONS (1)
  - LYMPHADENOPATHY [None]
